FAERS Safety Report 15753167 (Version 2)
Quarter: 2019Q1

REPORT INFORMATION
  Report Type: Spontaneous
  Country: BE (occurrence: BE)
  Receive Date: 20181222
  Receipt Date: 20190112
  Transmission Date: 20190417
  Serious: Yes (Life-Threatening, Hospitalization)
  Sender: FDA-Public Use
  Company Number: BE-TEVA-2018-BE-989394

PATIENT
  Age: 92 Year
  Sex: Male
  Weight: 60 kg

DRUGS (7)
  1. DONEPEZIL. [Suspect]
     Active Substance: DONEPEZIL
     Dosage: 5 MILLIGRAM DAILY; TAKEN IN THE EVENING
     Route: 048
     Dates: start: 20181101, end: 20181105
  2. ALLOPURINOL. [Concomitant]
     Active Substance: ALLOPURINOL
     Dosage: 100 MILLIGRAM DAILY;
     Route: 048
     Dates: start: 201709
  3. CORUNO [Concomitant]
     Active Substance: MOLSIDOMINE
     Dosage: 16 MILLIGRAM DAILY;
     Route: 048
     Dates: start: 20150101
  4. OXYBUTYNIN. [Concomitant]
     Active Substance: OXYBUTYNIN CHLORIDE
     Dosage: 10 MILLIGRAM DAILY;
     Route: 048
     Dates: start: 20151001, end: 20181031
  5. VESICARE [Interacting]
     Active Substance: SOLIFENACIN SUCCINATE
     Dosage: 10 MILLIGRAM DAILY; THE MORNING
     Route: 048
     Dates: start: 20181001, end: 20181031
  6. ASAFLOW [Concomitant]
     Active Substance: ASPIRIN
     Dosage: 80 MILLIGRAM DAILY;
     Route: 048
     Dates: start: 2009
  7. NOBITEN [Concomitant]
     Active Substance: NEBIVOLOL
     Dates: end: 20181104

REACTIONS (5)
  - Confusional state [Recovered/Resolved]
  - Drug interaction [Recovered/Resolved]
  - Epilepsy [Recovered/Resolved]
  - Paralysis [Recovered/Resolved]
  - Cardio-respiratory arrest [Recovered/Resolved]

NARRATIVE: CASE EVENT DATE: 20181104
